FAERS Safety Report 23455600 (Version 1)
Quarter: 2024Q1

REPORT INFORMATION
  Report Type: Spontaneous
  Country: US (occurrence: US)
  Receive Date: 20240130
  Receipt Date: 20240130
  Transmission Date: 20240410
  Serious: No
  Sender: FDA-Public Use
  Company Number: US-SANOFI-01916416

PATIENT
  Age: 80 Year
  Sex: Female

DRUGS (1)
  1. TOUJEO [Suspect]
     Active Substance: INSULIN GLARGINE
     Indication: Type 2 diabetes mellitus
     Dosage: 25 IU IN THE MORNING AND 43 IU IN THE EVENING (BID)
     Route: 065
     Dates: start: 2019

REACTIONS (3)
  - Hyperglycaemia [Unknown]
  - Blood glucose decreased [Unknown]
  - Inappropriate schedule of product administration [Unknown]

NARRATIVE: CASE EVENT DATE: 20240122
